FAERS Safety Report 7639012-3 (Version None)
Quarter: 2011Q3

REPORT INFORMATION
  Report Type: 
  Country: None (occurrence: None)
  Receive Date: 20110727
  Receipt Date: 20110720
  Transmission Date: 20111222
  Serious: No
  Sender: FDA-Public Use
  Company Number: US-PFIZER INC-2011166965

PATIENT

DRUGS (3)
  1. METHOTREXATE [Suspect]
  2. LYRICA [Suspect]
     Dosage: 75 MG DAILY
  3. MELOXICAM [Suspect]

REACTIONS (1)
  - SOMNAMBULISM [None]
